FAERS Safety Report 24439987 (Version 3)
Quarter: 2025Q3

REPORT INFORMATION
  Report Type: Report from Study
  Country: CA (occurrence: CA)
  Receive Date: 20241016
  Receipt Date: 20250806
  Transmission Date: 20251020
  Serious: Yes (Hospitalization, Other)
  Sender: ALEXION PHARMACEUTICALS
  Company Number: CA-AstraZeneca-2024A147460

PATIENT
  Age: 82 Year
  Sex: Female

DRUGS (2)
  1. ANIFROLUMAB [Suspect]
     Active Substance: ANIFROLUMAB
     Indication: Autoantibody positive
     Dosage: 300 MILLIGRAM, Q4W
     Dates: start: 20240425
  2. ANIFROLUMAB [Suspect]
     Active Substance: ANIFROLUMAB
     Indication: Systemic lupus erythematosus

REACTIONS (5)
  - Spinal fracture [Unknown]
  - Skin disorder [Unknown]
  - General physical health deterioration [Unknown]
  - Back pain [Unknown]
  - Infection [Unknown]
